FAERS Safety Report 8060215-0 (Version None)
Quarter: 2012Q1

REPORT INFORMATION
  Report Type: 
  Country: None (occurrence: None)
  Receive Date: 20120120
  Receipt Date: 20111004
  Transmission Date: 20120608
  Serious: No
  Sender: FDA-Public Use
  Company Number: US-NOVEN-11US003370

PATIENT
  Sex: Female
  Weight: 73.469 kg

DRUGS (8)
  1. FENTANYL [Suspect]
     Indication: FIBROMYALGIA
  2. HYDROMORPHONE HCL [Concomitant]
     Indication: BREAKTHROUGH PAIN
     Dosage: UNK
     Route: 048
  3. FENTANYL [Suspect]
     Indication: NEOPLASM MALIGNANT
     Dosage: 100 UG, EVERY 3 DAYS
     Route: 062
     Dates: start: 20110919
  4. FUROSEMIDE [Concomitant]
     Indication: PRODUCT USED FOR UNKNOWN INDICATION
     Route: 048
  5. FENTANYL [Suspect]
     Indication: SURGERY
  6. GABAPENTIN [Concomitant]
     Indication: PRODUCT USED FOR UNKNOWN INDICATION
     Route: 048
  7. XANAX [Concomitant]
     Indication: PRODUCT USED FOR UNKNOWN INDICATION
     Route: 048
  8. CYCLOBENZAPRINE [Concomitant]
     Indication: PRODUCT USED FOR UNKNOWN INDICATION
     Route: 048

REACTIONS (3)
  - PRODUCT QUALITY ISSUE [None]
  - INADEQUATE ANALGESIA [None]
  - DRUG ADMINISTRATION ERROR [None]
